FAERS Safety Report 11156684 (Version 1)
Quarter: 2015Q2

REPORT INFORMATION
  Report Type: Report from Study
  Country: IN (occurrence: IN)
  Receive Date: 20150602
  Receipt Date: 20150602
  Transmission Date: 20150821
  Serious: Yes (Death, Other)
  Sender: FDA-Public Use
  Company Number: IN-GLAXOSMITHKLINE INC.-IN2015GSK072984

PATIENT
  Age: 58 Year
  Sex: Female

DRUGS (1)
  1. TYKERB [Suspect]
     Active Substance: LAPATINIB DITOSYLATE
     Indication: BREAST CANCER METASTATIC
     Dosage: 250 MG (5 TAB), MG/BID/ALT DAYS
     Dates: start: 201410

REACTIONS (5)
  - Bedridden [Unknown]
  - Jaundice [Unknown]
  - Death [Fatal]
  - Food intolerance [Unknown]
  - Hepatic infection [Unknown]
